FAERS Safety Report 19854178 (Version 1)
Quarter: 2021Q3

REPORT INFORMATION
  Report Type: Other
  Country: DE (occurrence: DE)
  Receive Date: 20210920
  Receipt Date: 20210920
  Transmission Date: 20211014
  Serious: Yes (Death, Other)
  Sender: FDA-Public Use
  Company Number: DE-ROCHE-2910323

PATIENT

DRUGS (7)
  1. CYCLOSPORINE. [Suspect]
     Active Substance: CYCLOSPORINE
     Indication: PROPHYLAXIS AGAINST TRANSPLANT REJECTION
     Route: 065
  2. TACROLIMUS. [Suspect]
     Active Substance: TACROLIMUS
     Indication: PROPHYLAXIS AGAINST TRANSPLANT REJECTION
     Route: 065
  3. PREDNISOLONE. [Suspect]
     Active Substance: PREDNISOLONE
     Indication: PROPHYLAXIS AGAINST TRANSPLANT REJECTION
     Route: 065
  4. MYCOPHENOLATE MOFETIL. [Suspect]
     Active Substance: MYCOPHENOLATE MOFETIL
     Indication: PROPHYLAXIS AGAINST TRANSPLANT REJECTION
     Route: 065
  5. RAPAMYCIN [Suspect]
     Active Substance: SIROLIMUS
     Indication: PROPHYLAXIS AGAINST TRANSPLANT REJECTION
     Route: 065
  6. ATG [Suspect]
     Active Substance: LAPINE T-LYMPHOCYTE IMMUNE GLOBULIN
     Indication: PROPHYLAXIS AGAINST TRANSPLANT REJECTION
     Route: 065
  7. RITUXIMAB. [Concomitant]
     Active Substance: RITUXIMAB
     Route: 065

REACTIONS (21)
  - Urinary tract infection [Fatal]
  - Pyelonephritis [Unknown]
  - Pancreas infection [Fatal]
  - Diarrhoea infectious [Unknown]
  - Diverticulitis intestinal perforated [Unknown]
  - Polyomavirus-associated nephropathy [Unknown]
  - Herpes zoster [Unknown]
  - Pneumonia [Fatal]
  - Infected cyst [Fatal]
  - Meningoencephalitis bacterial [Unknown]
  - Peritonitis [Fatal]
  - Endocarditis [Fatal]
  - Vascular device infection [Fatal]
  - Infectious pleural effusion [Unknown]
  - Cholecystitis [Unknown]
  - Sepsis [Fatal]
  - Haematoma infection [Fatal]
  - Cytomegalovirus infection [Unknown]
  - Vasculitis [Unknown]
  - Parvovirus B19 infection [Unknown]
  - Soft tissue infection [Fatal]
